FAERS Safety Report 9848440 (Version 3)
Quarter: 2014Q1

REPORT INFORMATION
  Report Type: Spontaneous
  Country: US (occurrence: US)
  Receive Date: 20140128
  Receipt Date: 20140220
  Transmission Date: 20141002
  Serious: Yes (Other)
  Sender: FDA-Public Use
  Company Number: US-BEH-2012033212

PATIENT
  Age: 38 Year
  Sex: Female
  Weight: 83 kg

DRUGS (47)
  1. PRIVIGEN [Suspect]
     Dosage: 10 GM VIALS AT A MAXIMUM RATE OF 395 ML/HR
     Route: 042
     Dates: start: 20120823
  2. PRIVIGEN [Suspect]
     Indication: IMMUNODEFICIENCY COMMON VARIABLE
     Dosage: ??-???-2012; 25 ML/HR X 30 MINUTES, MAY INCREASE TO 49 ML/HR X 15 MIN. UP TO 395 ML/HR
     Route: 042
  3. PRIVIGEN [Suspect]
     Dosage: ??-???-2012; 25 ML/HR X 30 MINUTES, MAY INCREASE TO 49 ML/HR X 15 MIN. UP TO 395 ML/HR
     Route: 042
  4. PRIVIGEN [Suspect]
     Dosage: RATE: 25 ML/HR
     Route: 042
     Dates: start: 20130401, end: 20130401
  5. PRIVIGEN [Suspect]
     Dosage: 25 ML/HRX30 MIN,MAY INCREASE TO 49 ML/HRX15 MIN AND IF TOLERATED,GRADUALLY INCREASE TO MAX 395 ML/HR
     Route: 042
     Dates: start: 20130329
  6. PRIVIGEN [Suspect]
     Dosage: TOTAL PRIVIGEN DOSE WAS 35 G EVERY 4 WEEKS
     Route: 042
  7. PRIVIGEN [Suspect]
     Dosage: TOTAL PRIVIGEN DOSE WAS 35 G EVERY 4 WEEKS
     Route: 042
  8. PRIVIGEN [Suspect]
     Dosage: 5 GM VIAL; TOTAL PRIVIGEN DOSE WAS 35 G EVERY 4 WEEKS
     Route: 042
     Dates: start: 20130912
  9. PRIVIGEN [Suspect]
     Dosage: 10GM VIAL, TOTAL PRIVIGEN DOSE WAS 35 G EVERY 4 WEEKS
     Route: 042
     Dates: start: 20130912
  10. PRIVIGEN [Suspect]
     Dosage: 5 GM VIAL
     Route: 042
  11. PRIVIGEN [Suspect]
     Dosage: 10 GM VIAL
     Route: 042
  12. PRIVIGEN [Suspect]
     Dosage: 5 GM VIAL
     Route: 042
  13. PRIVIGEN [Suspect]
     Dosage: 10 GM VIAL
     Route: 042
  14. TYLENOL [Concomitant]
     Indication: PREMEDICATION
  15. BENADRYL [Concomitant]
     Indication: PREMEDICATION
  16. AZITHROMYCIN [Concomitant]
     Route: 048
  17. HEPARIN [Concomitant]
  18. SODIUM CHLORIDE [Concomitant]
     Dosage: 0.9%
  19. EPI-PEN [Concomitant]
     Indication: PREMEDICATION
  20. LASIX [Concomitant]
     Route: 048
  21. TRICOR [Concomitant]
     Route: 048
  22. SYNTHROID [Concomitant]
     Route: 048
  23. POTASSIUM CHLORIDE ER [Concomitant]
     Dosage: 10 MEQ
     Route: 048
  24. GABAPENTIN [Concomitant]
     Route: 048
  25. FLONASE [Concomitant]
     Dosage: 0.05%
     Route: 045
  26. VENTOLIN HFA [Concomitant]
     Dosage: 90 MCG
     Route: 055
  27. SYMBICORT [Concomitant]
     Dosage: 160-4.5 MCG
     Route: 055
  28. LOVAZA [Concomitant]
     Route: 048
  29. PRILOSEC [Concomitant]
     Dosage: DR
     Route: 048
  30. CYANOCOBALAMIN [Concomitant]
     Dosage: 1000 MCG/ML
  31. FLINSTONES IRON [Concomitant]
  32. TRAMADOL [Concomitant]
     Route: 048
  33. ACETAMINOPHEN [Concomitant]
  34. DIPHENHYDRAMINE [Concomitant]
  35. AVELOX [Concomitant]
     Route: 048
  36. TEGRETOL [Concomitant]
     Dosage: XR
     Route: 048
  37. FENOFIBRATE [Concomitant]
  38. BENTYL [Concomitant]
     Route: 048
  39. VITAMIN D3 [Concomitant]
     Dosage: 50,000 UNITS
     Route: 048
  40. ANTIVERT [Concomitant]
     Route: 048
  41. PREDNISONE [Concomitant]
  42. MACROBID [Concomitant]
  43. XIFAXAN [Concomitant]
  44. MULTIVITAMIN [Concomitant]
  45. MONURAL [Concomitant]
  46. BACLOFEN [Concomitant]
  47. DOXYCYCLINE [Concomitant]

REACTIONS (17)
  - Respiratory syncytial virus infection [Unknown]
  - Lung infection [Unknown]
  - Pyrexia [Unknown]
  - Productive cough [Unknown]
  - Feeling hot [Unknown]
  - Urinary tract infection bacterial [Unknown]
  - Urinary tract infection bacterial [Unknown]
  - Small intestinal bacterial overgrowth [Unknown]
  - Nausea [Unknown]
  - Vomiting [Unknown]
  - Diarrhoea [Unknown]
  - Headache [Recovered/Resolved]
  - Chills [Unknown]
  - Pain [Unknown]
  - Weight increased [Unknown]
  - Gastrointestinal infection [Unknown]
  - Urinary tract infection [Unknown]
